FAERS Safety Report 22067232 (Version 3)
Quarter: 2023Q1

REPORT INFORMATION
  Report Type: Other
  Country: US (occurrence: None)
  Receive Date: 20230307
  Receipt Date: 20230317
  Transmission Date: 20230417
  Serious: Yes (Hospitalization, Other)
  Sender: FDA-Public Use
  Company Number: US-ROCHE-3294405

PATIENT
  Age: 68 Year
  Sex: Female
  Weight: 89.438 kg

DRUGS (8)
  1. OCREVUS [Suspect]
     Active Substance: OCRELIZUMAB
     Indication: Relapsing multiple sclerosis
     Dosage: DATE OF SERVICE: 09/AUG/2022, 12/JAN/2021.?300 MG STRENGTH.
     Route: 042
     Dates: start: 20190118
  2. BACLOFEN [Concomitant]
     Active Substance: BACLOFEN
     Dosage: TAKE THREE TIMES DAILY AT BREAKFAST LUNCH AND DINNER
     Route: 048
  3. BUPROPION [Concomitant]
     Active Substance: BUPROPION
  4. FUROSEMIDE [Concomitant]
     Active Substance: FUROSEMIDE
  5. CALCIUM [Concomitant]
     Active Substance: CALCIUM
  6. VITAMIN D3 [Concomitant]
     Active Substance: CHOLECALCIFEROL
  7. VITAMIN A [Concomitant]
     Active Substance: VITAMIN A
  8. GABAPENTIN [Concomitant]
     Active Substance: GABAPENTIN

REACTIONS (4)
  - COVID-19 [Recovered/Resolved]
  - Pneumonia [Recovered/Resolved]
  - Body height decreased [Recovered/Resolved]
  - Feeling abnormal [Not Recovered/Not Resolved]

NARRATIVE: CASE EVENT DATE: 20220121
